FAERS Safety Report 8546909-9 (Version None)
Quarter: 2012Q3

REPORT INFORMATION
  Report Type: 
  Country: None (occurrence: None)
  Receive Date: 20120727
  Receipt Date: 20120117
  Transmission Date: 20120928
  Serious: No
  Sender: FDA-Public Use
  Company Number: US-ASTRAZENECA-2012SE03690

PATIENT
  Age: 58 Year
  Sex: Female

DRUGS (5)
  1. BUSPAR [Concomitant]
  2. PROZAC [Concomitant]
  3. SEROQUEL XR [Suspect]
     Indication: DEPRESSION
     Route: 048
  4. DEPAKOTE [Concomitant]
  5. WELLBUTRIN [Concomitant]

REACTIONS (3)
  - DEPRESSION [None]
  - NERVOUSNESS [None]
  - DRUG DOSE OMISSION [None]
